FAERS Safety Report 9856183 (Version 4)
Quarter: 2014Q1

REPORT INFORMATION
  Report Type: Report from Study
  Country: AU (occurrence: AU)
  Receive Date: 20140130
  Receipt Date: 20140227
  Transmission Date: 20141002
  Serious: Yes (Hospitalization, Other)
  Sender: FDA-Public Use
  Company Number: PHHY2014AU010376

PATIENT
  Age: 63 Year
  Sex: Male

DRUGS (1)
  1. CLOZARIL [Suspect]
     Dosage: 100 MG, UNK
     Dates: start: 20080326

REACTIONS (6)
  - Rhabdomyolysis [Unknown]
  - Renal failure acute [Unknown]
  - Urinary tract infection [Unknown]
  - Renal disorder [Unknown]
  - Neuroleptic malignant syndrome [Unknown]
  - Fall [Recovering/Resolving]
